FAERS Safety Report 5083730-0 (Version None)
Quarter: 2006Q3

REPORT INFORMATION
  Report Type: 
  Country: None (occurrence: None)
  Receive Date: 20060818
  Receipt Date: 20060731
  Transmission Date: 20061208
  Serious: Yes (Hospitalization)
  Sender: FDA-Public Use
  Company Number: FI-ROCHE-457457

PATIENT
  Age: 54 Year
  Sex: Female

DRUGS (6)
  1. XENICAL [Suspect]
     Indication: OBESITY
     Route: 048
     Dates: start: 20060703, end: 20060716
  2. LIPITOR [Concomitant]
     Route: 048
  3. MAREVAN [Concomitant]
     Route: 048
  4. COVERSYL PLUS [Concomitant]
     Route: 048
  5. IMOVANE [Concomitant]
     Indication: SLEEP DISORDER
     Route: 048
  6. PANADOL [Concomitant]
     Route: 048

REACTIONS (1)
  - PANCREATITIS [None]
